FAERS Safety Report 22361341 (Version 2)
Quarter: 2023Q2

REPORT INFORMATION
  Report Type: Spontaneous
  Country: US (occurrence: US)
  Receive Date: 20230524
  Receipt Date: 20230529
  Transmission Date: 20230721
  Serious: No
  Sender: FDA-Public Use
  Company Number: US-002147023-NVSC2023US114396

PATIENT
  Sex: Female

DRUGS (1)
  1. XIIDRA [Suspect]
     Active Substance: LIFITEGRAST
     Indication: Product used for unknown indication
     Dosage: UNK
     Route: 047

REACTIONS (5)
  - Sinus pain [Unknown]
  - Eye discharge [Unknown]
  - Urticaria [Unknown]
  - Vision blurred [Unknown]
  - Headache [Unknown]
